FAERS Safety Report 25249540 (Version 1)
Quarter: 2025Q2

REPORT INFORMATION
  Report Type: Spontaneous
  Country: FR (occurrence: FR)
  Receive Date: 20250429
  Receipt Date: 20250429
  Transmission Date: 20250717
  Serious: Yes (Other)
  Sender: NOVARTIS
  Company Number: FR-002147023-NVSC2025FR025510

PATIENT
  Age: 75 Year
  Sex: Female

DRUGS (7)
  1. BEOVU [Suspect]
     Active Substance: BROLUCIZUMAB-DBLL
     Indication: Age-related macular degeneration
     Route: 031
     Dates: start: 20241017
  2. BEOVU [Suspect]
     Active Substance: BROLUCIZUMAB-DBLL
     Route: 031
     Dates: start: 20241205
  3. BEOVU [Suspect]
     Active Substance: BROLUCIZUMAB-DBLL
     Route: 031
     Dates: start: 20250130, end: 20250130
  4. TOBRADEX [Concomitant]
     Active Substance: DEXAMETHASONE\TOBRAMYCIN
     Indication: Age-related macular degeneration
     Route: 047
     Dates: start: 20250205, end: 20250213
  5. DEXAMETHASONE\OXYTETRACYCLINE [Concomitant]
     Active Substance: DEXAMETHASONE\OXYTETRACYCLINE
     Indication: Age-related macular degeneration
     Route: 065
     Dates: start: 20250205, end: 20250222
  6. ATROPINE [Concomitant]
     Active Substance: ATROPINE
     Indication: Age-related macular degeneration
     Route: 047
     Dates: start: 20250205, end: 20250213
  7. DEXAMETHASONE [Concomitant]
     Active Substance: DEXAMETHASONE
     Indication: Age-related macular degeneration
     Route: 031
     Dates: start: 20250206

REACTIONS (7)
  - Uveitis [Unknown]
  - Vitritis [Recovered/Resolved]
  - Eye haemorrhage [Unknown]
  - Vision blurred [Not Recovered/Not Resolved]
  - Vitreous floaters [Recovered/Resolved]
  - Anterior chamber flare [Recovered/Resolved]
  - Visual acuity reduced [Unknown]

NARRATIVE: CASE EVENT DATE: 20250204
